FAERS Safety Report 6968776-7 (Version None)
Quarter: 2010Q3

REPORT INFORMATION
  Report Type: 
  Country: None (occurrence: None)
  Receive Date: 20100907
  Receipt Date: 20100825
  Transmission Date: 20110219
  Serious: Yes (Other)
  Sender: FDA-Public Use
  Company Number: PHHY2010CA43808

PATIENT
  Sex: Female

DRUGS (2)
  1. ZOLEDRONIC [Suspect]
     Dosage: 5 MG
     Dates: start: 20090628
  2. ZOLEDRONIC [Suspect]
     Dosage: 5MG
     Dates: start: 20100630

REACTIONS (3)
  - ANXIETY [None]
  - ASTHENIA [None]
  - DEPRESSION [None]
